FAERS Safety Report 13178372 (Version 1)
Quarter: 2017Q1

REPORT INFORMATION
  Report Type: Spontaneous
  Country: MX (occurrence: MX)
  Receive Date: 20170202
  Receipt Date: 20170202
  Transmission Date: 20170428
  Serious: Yes (Death)
  Sender: FDA-Public Use
  Company Number: MX-ABBVIE-17K-107-1858750-00

PATIENT
  Sex: Female

DRUGS (2)
  1. HUMIRA [Suspect]
     Active Substance: ADALIMUMAB
     Indication: OFF LABEL USE
  2. HUMIRA [Suspect]
     Active Substance: ADALIMUMAB
     Indication: ATLANTOAXIAL INSTABILITY
     Route: 058
     Dates: start: 201609

REACTIONS (2)
  - Off label use [Unknown]
  - Death [Fatal]
